FAERS Safety Report 8243283-2 (Version None)
Quarter: 2012Q1

REPORT INFORMATION
  Report Type: 
  Country: None (occurrence: None)
  Receive Date: 20120314
  Receipt Date: 20110106
  Transmission Date: 20120608
  Serious: Yes (Other)
  Sender: FDA-Public Use
  Company Number: PHHY2011US01332

PATIENT
  Age: 38 Year
  Sex: Female

DRUGS (4)
  1. FANAPT [Suspect]
     Indication: BIPOLAR DISORDER
     Dosage: 8 MG,,ORAL
     Route: 048
     Dates: start: 20100819, end: 20101231
  2. XANAX [Concomitant]
  3. LAMICTAL [Concomitant]
  4. ABMIENOA [Concomitant]

REACTIONS (1)
  - HYPERSENSITIVITY [None]
